FAERS Safety Report 9375120 (Version 1)
Quarter: 2013Q2

REPORT INFORMATION
  Report Type: Spontaneous
  Country: HR (occurrence: HR)
  Receive Date: 20130628
  Receipt Date: 20130628
  Transmission Date: 20140414
  Serious: Yes (Other)
  Sender: FDA-Public Use
  Company Number: HR-ELI_LILLY_AND_COMPANY-HR201306007491

PATIENT
  Age: 66 Year
  Sex: Female

DRUGS (2)
  1. PROZAC [Suspect]
     Indication: NEUROSIS
     Dosage: 5 ML, QD
     Route: 048
     Dates: start: 20130418, end: 20130423
  2. CLOPIDOGREL BISULFATE [Concomitant]
     Indication: LIVER DISORDER
     Dosage: 75 MG, QD
     Route: 048
     Dates: start: 20120920

REACTIONS (5)
  - Syncope [Unknown]
  - Nausea [Unknown]
  - Diarrhoea [Unknown]
  - Decreased appetite [Unknown]
  - Negative thoughts [Unknown]
